FAERS Safety Report 10866137 (Version 1)
Quarter: 2015Q1

REPORT INFORMATION
  Report Type: Spontaneous
  Country: US (occurrence: None)
  Receive Date: 20150219
  Receipt Date: 20150219
  Transmission Date: 20150721
  Serious: No
  Sender: FDA-Public Use
  Company Number: None

PATIENT
  Age: 61 Year
  Sex: Male
  Weight: 63.5 kg

DRUGS (1)
  1. TAMSULOSIN HCL [Suspect]
     Active Substance: TAMSULOSIN
     Indication: BENIGN PROSTATIC HYPERPLASIA
     Dosage: 1 CAPSULE ONCE DAILY TAKEN BY MOUTH
     Route: 048
     Dates: start: 20150205, end: 20150217

REACTIONS (5)
  - Product physical issue [None]
  - Product quality issue [None]
  - Benign prostatic hyperplasia [None]
  - Disease recurrence [None]
  - Product substitution issue [None]

NARRATIVE: CASE EVENT DATE: 20150124
